FAERS Safety Report 14363182 (Version 1)
Quarter: 2018Q1

REPORT INFORMATION
  Report Type: Spontaneous
  Country: US (occurrence: US)
  Receive Date: 20180108
  Receipt Date: 20180108
  Transmission Date: 20180509
  Serious: No
  Sender: FDA-Public Use
  Company Number: US-ALLERGAN-1704423US

PATIENT
  Sex: Female

DRUGS (2)
  1. BYSTOLIC [Suspect]
     Active Substance: NEBIVOLOL HYDROCHLORIDE
     Indication: BLOOD PRESSURE MEASUREMENT
     Dosage: 5 MG, QD
     Route: 048
  2. ESTRADIOL. [Concomitant]
     Active Substance: ESTRADIOL
     Dosage: 1 MG EVERY OTHER DAY AND 0.5 MG ON THE OTHER

REACTIONS (11)
  - Raynaud^s phenomenon [Unknown]
  - Fall [Unknown]
  - Contusion [Unknown]
  - Peripheral swelling [Unknown]
  - White blood cell count decreased [Unknown]
  - Vitreous floaters [Unknown]
  - Plateletcrit decreased [Unknown]
  - Therapeutic response decreased [Unknown]
  - Vitamin D decreased [Unknown]
  - Tooth fracture [Unknown]
  - Hypothyroidism [Unknown]
